FAERS Safety Report 6765195-3 (Version None)
Quarter: 2010Q2

REPORT INFORMATION
  Report Type: 
  Country: None (occurrence: None)
  Receive Date: 20100610
  Receipt Date: 20100610
  Transmission Date: 20101027
  Serious: Yes (Life-Threatening)
  Sender: FDA-Public Use
  Company Number: None

PATIENT
  Age: 53 Year
  Sex: Male
  Weight: 68.9467 kg

DRUGS (1)
  1. SEROQUEL [Suspect]
     Indication: SLEEP DISORDER
     Dosage: 25MG 1X AT NIGHT PO
     Route: 048
     Dates: start: 20100603, end: 20100609

REACTIONS (11)
  - DECREASED APPETITE [None]
  - DISTURBANCE IN ATTENTION [None]
  - GASTRIC DISORDER [None]
  - HYPERTENSION [None]
  - JUDGEMENT IMPAIRED [None]
  - LETHARGY [None]
  - MUSCLE SPASMS [None]
  - MYALGIA [None]
  - PALPITATIONS [None]
  - PRODUCT QUALITY ISSUE [None]
  - WEIGHT INCREASED [None]
